FAERS Safety Report 7511121-9 (Version None)
Quarter: 2011Q2

REPORT INFORMATION
  Report Type: 
  Country: None (occurrence: None)
  Receive Date: 20110531
  Receipt Date: 20110525
  Transmission Date: 20111010
  Serious: Yes (Other)
  Sender: FDA-Public Use
  Company Number: US-AMGEN-USASP2011026581

PATIENT
  Age: 30 Year
  Sex: Female

DRUGS (8)
  1. CORTICOSTEROIDS [Concomitant]
  2. IVIGLOB-EX [Concomitant]
  3. PROMACTA [Concomitant]
     Dosage: UNK
     Dates: start: 20100924
  4. RITUXIMAB [Concomitant]
  5. WINRHO [Concomitant]
  6. VITAMIN D [Concomitant]
  7. NPLATE [Suspect]
     Indication: IDIOPATHIC THROMBOCYTOPENIC PURPURA
     Dosage: 7.1 A?G/KG, UNK
     Dates: start: 20090803, end: 20100816
  8. PLAQUENIL [Concomitant]
     Dosage: UNK

REACTIONS (4)
  - THROMBOCYTOSIS [None]
  - THROMBOCYTOPENIA [None]
  - PLATELET COUNT DECREASED [None]
  - PLATELET COUNT ABNORMAL [None]
